FAERS Safety Report 21936525 (Version 1)
Quarter: 2023Q1

REPORT INFORMATION
  Report Type: Spontaneous
  Country: GB (occurrence: GB)
  Receive Date: 20230201
  Receipt Date: 20230201
  Transmission Date: 20230417
  Serious: Yes (Other)
  Sender: FDA-Public Use
  Company Number: GB-BAXTER-2023BAX011545

PATIENT
  Age: 35 Year
  Sex: Male

DRUGS (1)
  1. DIANEAL LOW CALCIUM WITH DEXTROSE [Suspect]
     Active Substance: CALCIUM CHLORIDE\DEXTROSE\MAGNESIUM CHLORIDE\SODIUM CHLORIDE\SODIUM LACTATE
     Indication: Peritoneal dialysis
     Dosage: 1 BAG DAILY
     Route: 033

REACTIONS (2)
  - Peritoneal dialysis complication [Unknown]
  - Catheter site infection [Recovered/Resolved]

NARRATIVE: CASE EVENT DATE: 20230116
